FAERS Safety Report 6740071-0 (Version None)
Quarter: 2010Q2

REPORT INFORMATION
  Report Type: 
  Country: None (occurrence: None)
  Receive Date: 20100525
  Receipt Date: 20090515
  Transmission Date: 20101027
  Serious: No
  Sender: FDA-Public Use
  Company Number: A0784887A

PATIENT
  Age: 74 Year
  Sex: Female

DRUGS (5)
  1. BACTROBAN [Suspect]
     Indication: DRUG USE FOR UNKNOWN INDICATION
     Dosage: 1APP FOUR TIMES PER DAY
     Route: 045
     Dates: start: 20090505
  2. HYDREA [Concomitant]
  3. TYLENOL [Concomitant]
  4. UNKNOWN [Concomitant]
  5. HYDROXYUREA [Concomitant]

REACTIONS (17)
  - CHEST DISCOMFORT [None]
  - CHEST PAIN [None]
  - COUGH [None]
  - DRY MOUTH [None]
  - DYSPHONIA [None]
  - FEELING ABNORMAL [None]
  - HEADACHE [None]
  - ILL-DEFINED DISORDER [None]
  - MUSCULOSKELETAL PAIN [None]
  - NECK PAIN [None]
  - PAIN IN EXTREMITY [None]
  - RASH PAPULAR [None]
  - SALIVARY GLAND DISORDER [None]
  - SINUS HEADACHE [None]
  - SWOLLEN TONGUE [None]
  - TONGUE DISORDER [None]
  - UNEVALUABLE EVENT [None]
